FAERS Safety Report 15518009 (Version 2)
Quarter: 2018Q4

REPORT INFORMATION
  Report Type: Report from Study
  Country: AT (occurrence: AT)
  Receive Date: 20181017
  Receipt Date: 20181029
  Transmission Date: 20190205
  Serious: Yes (Hospitalization)
  Sender: FDA-Public Use
  Company Number: AT-PFIZER INC-2018417419

PATIENT
  Age: 61 Year
  Sex: Female
  Weight: 55 kg

DRUGS (12)
  1. TRASTUZUMAB. [Suspect]
     Active Substance: TRASTUZUMAB
     Indication: HER-2 POSITIVE BREAST CANCER
     Dosage: 440 MG, EVERY 3 WEEKS (MOST RECENT DOSE PRIOR TO THE EVENT EVENT: 09/AUG/2018)
     Route: 042
     Dates: start: 20180719
  2. ZOFRAN [ONDANSETRON] [Concomitant]
     Dosage: UNK
     Route: 065
     Dates: start: 20180920
  3. NAVELBINE [Suspect]
     Active Substance: VINORELBINE TARTRATE
     Indication: HER-2 POSITIVE BREAST CANCER
     Dosage: 50 MG, UNK
     Route: 048
     Dates: start: 20180719
  4. DUROTIV [Concomitant]
     Active Substance: ESOMEPRAZOLE
     Indication: DYSPEPSIA
  5. HALDOL [Concomitant]
     Active Substance: HALOPERIDOL
     Dosage: UNK
     Route: 065
     Dates: start: 20180727
  6. HYDAL [Concomitant]
     Active Substance: HYDROMORPHONE HYDROCHLORIDE
     Dosage: UNK
     Route: 065
     Dates: start: 20180727
  7. PERTUZUMAB. [Suspect]
     Active Substance: PERTUZUMAB
     Indication: HER-2 POSITIVE BREAST CANCER
     Dosage: 840 MG, EVERY 3 WEEKS
     Route: 042
     Dates: start: 20180719
  8. EUTHYROX [Concomitant]
     Active Substance: LEVOTHYROXINE SODIUM
     Dosage: UNK
     Route: 065
  9. NOVALGIN [METAMIZOLE SODIUM] [Concomitant]
     Dosage: UNK
     Dates: start: 20180727
  10. AROMASIN [Suspect]
     Active Substance: EXEMESTANE
     Indication: HER-2 POSITIVE BREAST CANCER
     Dosage: 25 MG, DAILY
     Route: 048
     Dates: start: 20180719
  11. DUROTIV [Concomitant]
     Active Substance: ESOMEPRAZOLE
     Indication: NAUSEA
     Dosage: UNK
     Route: 065
     Dates: start: 20180819
  12. ONDANSAN [Concomitant]
     Dosage: UNK
     Route: 065
     Dates: start: 20180709

REACTIONS (5)
  - Diarrhoea [Recovered/Resolved]
  - Dyspepsia [Recovered/Resolved]
  - Infusion related reaction [Recovered/Resolved]
  - Vertigo [Recovered/Resolved]
  - Nausea [Recovered/Resolved]

NARRATIVE: CASE EVENT DATE: 20180727
